FAERS Safety Report 6944922-6 (Version None)
Quarter: 2010Q3

REPORT INFORMATION
  Report Type: 
  Country: None (occurrence: None)
  Receive Date: 20100824
  Receipt Date: 20100812
  Transmission Date: 20110219
  Serious: Yes (Life-Threatening, Hospitalization)
  Sender: FDA-Public Use
  Company Number: 669264

PATIENT
  Age: 74 Year
  Sex: Female
  Weight: 83.8 kg

DRUGS (5)
  1. OXALIPLATIN [Suspect]
     Indication: COLORECTAL CANCER
     Dosage: 250 MG MILLIGRAM(S), INTRAVENOUS
     Route: 042
     Dates: start: 20100721, end: 20100721
  2. (BENDROFLUAZIDE) [Concomitant]
  3. (IRON) [Concomitant]
  4. LACTULOSE [Concomitant]
  5. RAMIPRIL [Concomitant]

REACTIONS (4)
  - LARYNGOSPASM [None]
  - MUSCLE SPASMS [None]
  - PARAESTHESIA [None]
  - STRIDOR [None]
